FAERS Safety Report 17792664 (Version 1)
Quarter: 2020Q2

REPORT INFORMATION
  Report Type: Spontaneous
  Country: FR (occurrence: FR)
  Receive Date: 20200515
  Receipt Date: 20200515
  Transmission Date: 20200714
  Serious: Yes (Death)
  Sender: FDA-Public Use
  Company Number: FR-TEVA-2020-FR-1233544

PATIENT
  Age: 71 Year
  Sex: Male
  Weight: 110 kg

DRUGS (3)
  1. BISOPROLOL CRISTERS 5 MG, COMPRIM? S?CABLE [Suspect]
     Active Substance: BISOPROLOL FUMARATE
     Indication: ARRHYTHMIA
     Dosage: 5 MG
  2. AMIODARONE CRISTERS 200 MG, COMPRIM? S?CABLE [Suspect]
     Active Substance: AMIODARONE HYDROCHLORIDE
     Indication: ARRHYTHMIA
     Dosage: 1 DOSAGE FORMS
     Route: 048
     Dates: start: 20180905, end: 20191207
  3. ENALAPRIL TEVA 5 MG, COMPRIM? S?CABLE [Suspect]
     Active Substance: ENALAPRIL
     Indication: ARRHYTHMIA

REACTIONS (4)
  - Hypoaesthesia [Fatal]
  - Thyroid function test abnormal [Fatal]
  - Dyspnoea [Fatal]
  - Flushing [Fatal]

NARRATIVE: CASE EVENT DATE: 20190420
